FAERS Safety Report 4866906-4 (Version None)
Quarter: 2005Q4

REPORT INFORMATION
  Report Type: 
  Country: None (occurrence: None)
  Receive Date: 20051222
  Receipt Date: 20051209
  Transmission Date: 20060501
  Serious: Yes (Other)
  Sender: FDA-Public Use
  Company Number: 2005167556

PATIENT
  Age: 23 Year
  Sex: Female

DRUGS (4)
  1. DEPO-PROVERA [Suspect]
     Indication: GENITAL DISORDER FEMALE
  2. PRIMOLUT                             (NORETHISTERONE) [Suspect]
     Indication: GENITAL DISORDER FEMALE
  3. CORTISONE ACETATE [Concomitant]
  4. FLUDROCORTISONE ACETATE [Concomitant]

REACTIONS (2)
  - HYPERKALAEMIA [None]
  - HYPERTENSION [None]
